FAERS Safety Report 8809486 (Version 1)
Quarter: 2012Q4

REPORT INFORMATION
  Report Type: 
  Country: JP (occurrence: JP)
  Receive Date: 20120926
  Receipt Date: 20120926
  Transmission Date: 20130627
  Serious: Yes (Hospitalization)
  Sender: FDA-Public Use
  Company Number: JP-ROCHE-1082816

PATIENT
  Age: 46 Year
  Sex: Male
  Weight: 81 kg

DRUGS (3)
  1. ROCEPHIN [Suspect]
     Indication: PHARYNGEAL ERYTHEMA
     Dosage: Rocephin 1g Bag
     Route: 041
     Dates: start: 20120510, end: 20120513
  2. ZITHROMAX [Suspect]
     Indication: PHARYNGEAL ERYTHEMA
     Route: 048
     Dates: start: 20120511, end: 20120513
  3. SOLU-CORTEF [Concomitant]
     Route: 041
     Dates: start: 20120510, end: 20120510

REACTIONS (3)
  - Erythema multiforme [Recovered/Resolved]
  - Human herpes virus 6 serology positive [Unknown]
  - Urticaria [Recovered/Resolved]
